FAERS Safety Report 26112875 (Version 1)
Quarter: 2025Q4

REPORT INFORMATION
  Report Type: Spontaneous
  Country: US (occurrence: US)
  Receive Date: 20251202
  Receipt Date: 20251202
  Transmission Date: 20260117
  Serious: No
  Sender: SANOFI AVENTIS
  Company Number: US-SA-2025SA359337

PATIENT
  Sex: Male
  Weight: 93.878 kg

DRUGS (11)
  1. DUPIXENT [Suspect]
     Active Substance: DUPILUMAB
     Indication: Dermatitis atopic
     Dosage: 300 MG, QOW
     Route: 058
  2. ALFUZOSIN HYDROCHLORIDE [Concomitant]
     Active Substance: ALFUZOSIN HYDROCHLORIDE
  3. ROPINIROLE [Concomitant]
     Active Substance: ROPINIROLE
  4. ESCITALOPRAM OXALATE [Concomitant]
     Active Substance: ESCITALOPRAM OXALATE
  5. MELOXICAM [Concomitant]
     Active Substance: MELOXICAM
  6. VITAMIN B COMPLEX [Concomitant]
     Active Substance: CYANOCOBALAMIN\DEXPANTHENOL\NIACINAMIDE\PYRIDOXINE HYDROCHLORIDE\RIBOFLAVIN 5^-PHOSPHATE SODIUM\THIA
  7. VITAMINS NOS [Concomitant]
     Active Substance: VITAMINS
  8. OMEPRAZOLE [Concomitant]
     Active Substance: OMEPRAZOLE
  9. MAGNESIUM [Concomitant]
     Active Substance: MAGNESIUM
  10. ASPIRIN [Concomitant]
     Active Substance: ASPIRIN
  11. IBUPROFEN [Concomitant]
     Active Substance: IBUPROFEN

REACTIONS (5)
  - Sleep disorder due to a general medical condition [Unknown]
  - Eczema [Unknown]
  - Pruritus [Unknown]
  - Dry skin [Unknown]
  - Skin exfoliation [Unknown]
